FAERS Safety Report 19503715 (Version 1)
Quarter: 2021Q3

REPORT INFORMATION
  Report Type: Spontaneous
  Country: FR (occurrence: FR)
  Receive Date: 20210707
  Receipt Date: 20210707
  Transmission Date: 20211014
  Serious: Yes (Other)
  Sender: FDA-Public Use
  Company Number: FR-JNJFOC-20210702910

PATIENT

DRUGS (8)
  1. MINOXIDIL. [Suspect]
     Active Substance: MINOXIDIL
     Indication: ALOPECIA AREATA
  2. MINOXIDIL. [Suspect]
     Active Substance: MINOXIDIL
     Indication: POSTMENOPAUSE
  3. MINOXIDIL. [Suspect]
     Active Substance: MINOXIDIL
     Indication: HAIR DISORDER
  4. MINOXIDIL. [Suspect]
     Active Substance: MINOXIDIL
     Indication: ALOPECIA AREATA
  5. MINOXIDIL. [Suspect]
     Active Substance: MINOXIDIL
     Indication: ANDROGENETIC ALOPECIA
     Route: 061
  6. MINOXIDIL. [Suspect]
     Active Substance: MINOXIDIL
     Indication: POSTMENOPAUSE
  7. MINOXIDIL. [Suspect]
     Active Substance: MINOXIDIL
     Indication: HAIR DISORDER
  8. MINOXIDIL. [Suspect]
     Active Substance: MINOXIDIL
     Indication: ANDROGENETIC ALOPECIA
     Route: 061

REACTIONS (11)
  - Myocardial infarction [Unknown]
  - Depression [Unknown]
  - Angina pectoris [Unknown]
  - Neuropathy peripheral [Unknown]
  - Gynaecomastia [Unknown]
  - Erectile dysfunction [Unknown]
  - Overdose [Unknown]
  - Infertility [Unknown]
  - Ejaculation disorder [Unknown]
  - Product use in unapproved indication [Unknown]
  - Underdose [Unknown]
